FAERS Safety Report 6873510 (Version 4)
Quarter: 2013Q2

REPORT INFORMATION
  Report Type: Other
  Country: GB (occurrence: GB)
  Receive Date: 20090106
  Receipt Date: 20130531
  Transmission Date: 20140414
  Serious: Yes (Other)
  Sender: FDA-Public Use
  Company Number: GB-BRISTOL-MYERS SQUIBB COMPANY-14459507

PATIENT
  Age: 7 Year
  Sex: Male

DRUGS (6)
  1. CARBOPLATIN [Suspect]
     Indication: EMBRYONAL RHABDOMYOSARCOMA
     Route: 065
  2. IFOSFAMIDE [Suspect]
     Indication: EMBRYONAL RHABDOMYOSARCOMA
     Route: 065
  3. ETOPOSIDE [Suspect]
     Indication: EMBRYONAL RHABDOMYOSARCOMA
     Route: 065
  4. VINCRISTINE SULFATE [Suspect]
     Indication: EMBRYONAL RHABDOMYOSARCOMA
     Route: 065
  5. ACTINOMYCIN-D [Suspect]
     Indication: EMBRYONAL RHABDOMYOSARCOMA
     Route: 042
  6. EPIRUBICIN HCL [Suspect]
     Indication: EMBRYONAL RHABDOMYOSARCOMA
     Route: 065

REACTIONS (1)
  - Papillary thyroid cancer [Unknown]
